FAERS Safety Report 25901703 (Version 2)
Quarter: 2025Q4

REPORT INFORMATION
  Report Type: Spontaneous
  Country: EG (occurrence: EG)
  Receive Date: 20251009
  Receipt Date: 20251124
  Transmission Date: 20260117
  Serious: Yes (Life-Threatening, Hospitalization)
  Sender: NOVO NORDISK
  Company Number: EG-NOVOPROD-1535745

PATIENT
  Age: 70 Year
  Sex: Female

DRUGS (6)
  1. NOVORAPID [Suspect]
     Active Substance: INSULIN ASPART
     Indication: Type 2 diabetes mellitus
     Dosage: 19 IU, QD (9U AT MORNING/10U AFTER LUNCH)
     Route: 058
  2. CIPRALEX [Concomitant]
     Active Substance: ESCITALOPRAM OXALATE
     Dosage: ONCE DAILY NOT REGULARLY
     Route: 048
  3. TRESIBA [Suspect]
     Active Substance: INSULIN DEGLUDEC
     Indication: Type 2 diabetes mellitus
     Dosage: 20 U
     Route: 058
  4. CYANOCOBALAMIN [Concomitant]
     Active Substance: CYANOCOBALAMIN
     Indication: Vitamin supplementation
     Dosage: ONCE EVERY 4 DAYS
     Route: 030
  5. OCUGUARD [Concomitant]
     Active Substance: OCUGUARD
     Dosage: ONCE DAILY NOT REGULARLY
     Route: 031
  6. TOBREX [Concomitant]
     Active Substance: TOBRAMYCIN
     Dosage: NOT REGULAR AS PER NEED
     Route: 031

REACTIONS (1)
  - Osteoporosis [Unknown]
